FAERS Safety Report 8600511-9 (Version None)
Quarter: 2012Q3

REPORT INFORMATION
  Report Type: 
  Country: None (occurrence: None)
  Receive Date: 20120803
  Receipt Date: 20120723
  Transmission Date: 20120928
  Serious: Yes (Other)
  Sender: FDA-Public Use
  Company Number: AUR-APL-2012-03194

PATIENT
  Age: 74 Year
  Sex: Female
  Weight: 65 kg

DRUGS (3)
  1. OMEPRAZOLE [Concomitant]
  2. RANITIDINE HYDROCHLORIDE [Suspect]
     Indication: DYSPEPSIA
     Dosage: (150 MG), ORAL
     Route: 048
     Dates: start: 20120604, end: 20120615
  3. LEVOTHYROXINE SODIUM [Concomitant]

REACTIONS (8)
  - INFLUENZA LIKE ILLNESS [None]
  - SKIN DISCOLOURATION [None]
  - SKIN EXFOLIATION [None]
  - ERYTHEMA [None]
  - MALAISE [None]
  - RASH [None]
  - OEDEMA [None]
  - CHILLS [None]
